FAERS Safety Report 16631561 (Version 2)
Quarter: 2019Q3

REPORT INFORMATION
  Report Type: Spontaneous
  Country: US (occurrence: US)
  Receive Date: 20190725
  Receipt Date: 20190826
  Transmission Date: 20191004
  Serious: No
  Sender: FDA-Public Use
  Company Number: US-BAYER-2019-138663

PATIENT
  Age: 76 Year
  Sex: Female
  Weight: 49 kg

DRUGS (1)
  1. MIRALAX [Suspect]
     Active Substance: POLYETHYLENE GLYCOL 3350
     Indication: GASTROINTESTINAL DISORDER
     Dosage: 17 G
     Route: 048
     Dates: start: 20190719

REACTIONS (5)
  - Drug ineffective [Unknown]
  - Dehydration [None]
  - Dyschezia [Unknown]
  - Diarrhoea [Unknown]
  - Malaise [None]

NARRATIVE: CASE EVENT DATE: 20190719
